FAERS Safety Report 11558617 (Version 1)
Quarter: 2015Q3

REPORT INFORMATION
  Report Type: Other
  Country: DE (occurrence: DE)
  Receive Date: 20150928
  Receipt Date: 20150928
  Transmission Date: 20151125
  Serious: Yes (Death, Other)
  Sender: FDA-Public Use
  Company Number: DE-SUN PHARMACEUTICAL INDUSTRIES LTD-2013SUN00481

PATIENT

DRUGS (5)
  1. BISOPROLOL [Concomitant]
     Active Substance: BISOPROLOL
     Dosage: 1 DF, BID
     Route: 048
  2. KREON [Concomitant]
     Active Substance: PANCRELIPASE
     Dosage: 1 DF, TID
     Route: 048
  3. TAZOBAC [Concomitant]
     Active Substance: PIPERACILLIN SODIUM\TAZOBACTAM SODIUM
     Dosage: 1 DF, TID
     Route: 042
     Dates: start: 20130221, end: 20130224
  4. ROCEPHIN [Concomitant]
     Active Substance: CEFTRIAXONE SODIUM
     Dosage: 1 DF, QD
     Route: 042
     Dates: start: 20130219, end: 20130221
  5. GEMCITABINE [Suspect]
     Active Substance: GEMCITABINE\GEMCITABINE HYDROCHLORIDE
     Indication: PANCREATIC CARCINOMA
     Dosage: 1000 MG/M2, UNK
     Route: 042
     Dates: start: 20120906, end: 201302

REACTIONS (8)
  - Dyspnoea [Unknown]
  - Acute kidney injury [Unknown]
  - Cardiac arrest [Unknown]
  - Pulse absent [Unknown]
  - Microangiopathic haemolytic anaemia [Unknown]
  - Haemolysis [Unknown]
  - Thrombocytopenia [Unknown]
  - Cardiac failure acute [Fatal]

NARRATIVE: CASE EVENT DATE: 20130218
